FAERS Safety Report 6836102-X (Version None)
Quarter: 2010Q3

REPORT INFORMATION
  Report Type: 
  Country: None (occurrence: None)
  Receive Date: 20100713
  Receipt Date: 20100701
  Transmission Date: 20110219
  Serious: Yes (Hospitalization)
  Sender: FDA-Public Use
  Company Number: BR-ROCHE-703089

PATIENT
  Sex: Female
  Weight: 70 kg

DRUGS (9)
  1. TOCILIZUMAB [Suspect]
     Indication: RHEUMATOID ARTHRITIS
     Dosage: FORM: INFUSION
     Route: 042
     Dates: start: 20100415, end: 20100415
  2. APROVEL [Concomitant]
  3. CONCOR [Concomitant]
  4. HYGROTON [Concomitant]
  5. ARAVA [Concomitant]
  6. PANTOPRAZOL [Concomitant]
  7. SIMVASTATIN [Concomitant]
  8. AMITRIL [Concomitant]
     Indication: DEPRESSION
     Dates: start: 20060101
  9. OMEPRAZOLE [Concomitant]

REACTIONS (5)
  - HYPOPHAGIA [None]
  - MICTURITION DISORDER [None]
  - PNEUMONIA [None]
  - URINARY INCONTINENCE [None]
  - URINARY TRACT INFECTION [None]
